FAERS Safety Report 16118570 (Version 1)
Quarter: 2019Q1

REPORT INFORMATION
  Report Type: Spontaneous
  Country: AU (occurrence: AU)
  Receive Date: 20190326
  Receipt Date: 20190326
  Transmission Date: 20190418
  Serious: Yes (Other)
  Sender: FDA-Public Use
  Company Number: PHHY2019AU063543

PATIENT
  Sex: Male

DRUGS (7)
  1. VITAMIN K [Suspect]
     Active Substance: PHYTONADIONE
     Indication: FOETAL EXPOSURE DURING PREGNANCY
     Route: 064
  2. CHOLESTYRAMINE. [Suspect]
     Active Substance: CHOLESTYRAMINE
     Indication: FOETAL EXPOSURE DURING PREGNANCY
     Dosage: MATERNAL DOSE: 4 MG, TID
     Route: 064
  3. URSODEOXYCHOLIC ACID [Suspect]
     Active Substance: URSODIOL
     Indication: FOETAL EXPOSURE DURING PREGNANCY
     Dosage: MATERNAL DOSE: 500 MG, TID
     Route: 064
  4. RIFAMPICIN [Suspect]
     Active Substance: RIFAMPIN
     Indication: FOETAL EXPOSURE DURING PREGNANCY
     Dosage: MATERNAL DOSE: 300 MG, QHS
     Route: 064
  5. METFORMIN [Suspect]
     Active Substance: METFORMIN HYDROCHLORIDE
     Indication: FOETAL EXPOSURE DURING PREGNANCY
     Route: 064
  6. URSODEOXYCHOLIC ACID [Suspect]
     Active Substance: URSODIOL
     Dosage: MATERNAL DOSE: 750 MG, QID
     Route: 064
  7. RIFAMPICIN [Suspect]
     Active Substance: RIFAMPIN
     Dosage: MATERNAL DOSE: 300 MG, BID
     Route: 064

REACTIONS (3)
  - Low birth weight baby [Unknown]
  - Foetal exposure during pregnancy [Unknown]
  - Premature baby [Unknown]
